FAERS Safety Report 8011601-6 (Version None)
Quarter: 2011Q4

REPORT INFORMATION
  Report Type: 
  Country: None (occurrence: None)
  Receive Date: 20111228
  Receipt Date: 20111215
  Transmission Date: 20120403
  Serious: Yes (Other)
  Sender: FDA-Public Use
  Company Number: AR-ROCHE-1024203

PATIENT
  Sex: Male

DRUGS (2)
  1. LUCENTIS [Suspect]
     Indication: MACULOPATHY
     Route: 050
     Dates: start: 20100101
  2. LUCENTIS [Suspect]
     Route: 050
     Dates: start: 20111101

REACTIONS (3)
  - EYE OEDEMA [None]
  - INJURY CORNEAL [None]
  - FOREIGN BODY IN EYE [None]
